FAERS Safety Report 9632968 (Version 3)
Quarter: 2014Q4

REPORT INFORMATION
  Report Type: Spontaneous
  Country: US (occurrence: US)
  Receive Date: 20131018
  Receipt Date: 20141002
  Transmission Date: 20150529
  Serious: Yes (Death)
  Sender: FDA-Public Use
  Company Number: US-BRISTOL-MYERS SQUIBB COMPANY-19563030

PATIENT
  Age: 77 Year
  Sex: Male

DRUGS (12)
  1. NOVOLOG [Concomitant]
     Active Substance: INSULIN ASPART
  2. ARIXTRA [Concomitant]
     Active Substance: FONDAPARINUX SODIUM
  3. MARINOL [Concomitant]
     Active Substance: DRONABINOL
  4. PANCREATIC ENZYME [Concomitant]
  5. FLORASTOR [Concomitant]
     Active Substance: SACCHAROMYCES CEREVISIAE
  6. DOXYCYCLINE. [Concomitant]
     Active Substance: DOXYCYCLINE
  7. LEXAPRO [Concomitant]
     Active Substance: ESCITALOPRAM OXALATE
  8. LEVAQUIN [Concomitant]
     Active Substance: LEVOFLOXACIN
  9. NEXAVAR [Concomitant]
     Active Substance: SORAFENIB
  10. XELODA [Concomitant]
     Active Substance: CAPECITABINE
  11. BYETTA [Suspect]
     Active Substance: EXENATIDE
     Indication: TYPE 2 DIABETES MELLITUS
     Dates: start: 20050616, end: 20090114
  12. VITAMIN D [Concomitant]
     Active Substance: CHOLECALCIFEROL

REACTIONS (1)
  - Pancreatic carcinoma [Fatal]
